FAERS Safety Report 16586285 (Version 1)
Quarter: 2019Q3

REPORT INFORMATION
  Report Type: Spontaneous
  Country: DE (occurrence: DE)
  Receive Date: 20190717
  Receipt Date: 20190717
  Transmission Date: 20191004
  Serious: Yes (Death, Life-Threatening, Hospitalization)
  Sender: FDA-Public Use
  Company Number: DE-TEVA-2019-DE-1078001

PATIENT
  Age: 68 Year
  Sex: Male

DRUGS (7)
  1. LEVOTHYROXIN-NATRIUM [Concomitant]
     Active Substance: LEVOTHYROXINE SODIUM
     Dosage: 150 ?G, 1-0-0-0, TABLETTEN
     Route: 048
  2. METFORMIN [Concomitant]
     Active Substance: METFORMIN HYDROCHLORIDE
     Dosage: 850 MG, 1-0-1-0, TABLETTEN
     Route: 048
  3. ETOPOSIDE. [Suspect]
     Active Substance: ETOPOSIDE
     Dosage: 100 MG/M2, NACH SCHEMA, ZULETZT AM 13.01.2018, INJEKTIONS-/INFUSIONSL?SUNG
     Route: 042
  4. DUODART 0,5MG/0,4MG [Concomitant]
     Dosage: 0.5|0.4 MG, 1-0-0-0, NACH SCHEMA, KAPSELN
     Route: 048
  5. CARVEDILOL. [Concomitant]
     Active Substance: CARVEDILOL
     Dosage: 25 MG, 1-0-0-0, TABLETTEN
     Route: 048
  6. ONDANSETRON [Concomitant]
     Active Substance: ONDANSETRON
     Dosage: 8 MG, 1-1-1-0, BEI BEDARF, TABLETTEN
     Route: 048
  7. CARBOPLATIN. [Suspect]
     Active Substance: CARBOPLATIN
     Dosage: NK MG/M2, NACH SCHEMA, ZULETZT AM 13.01.2018, INJEKTIONS-/INFUSIONSL?SUNG
     Route: 042

REACTIONS (3)
  - Flank pain [Unknown]
  - Pain [Unknown]
  - Abdominal pain lower [Unknown]
